FAERS Safety Report 25034627 (Version 1)
Quarter: 2025Q1

REPORT INFORMATION
  Report Type: Spontaneous
  Country: ES (occurrence: ES)
  Receive Date: 20250304
  Receipt Date: 20250304
  Transmission Date: 20250409
  Serious: Yes (Hospitalization)
  Sender: Haleon PLC
  Company Number: ES-AEMPS-1608718

PATIENT
  Age: 64 Year
  Sex: Male

DRUGS (1)
  1. DICLOFENAC [Suspect]
     Active Substance: DICLOFENAC
     Indication: Pain
     Dosage: Q8H (1-1-1)
     Route: 048
     Dates: start: 20240522, end: 20240618

REACTIONS (2)
  - Hyperbilirubinaemia [Recovered/Resolved]
  - Hepatic cytolysis [Recovered/Resolved]

NARRATIVE: CASE EVENT DATE: 20240806
